FAERS Safety Report 8771936 (Version 2)
Quarter: 2013Q2

REPORT INFORMATION
  Report Type: Spontaneous
  Country: FR (occurrence: FR)
  Receive Date: 20120906
  Receipt Date: 20130523
  Transmission Date: 20140414
  Serious: Yes (Other)
  Sender: FDA-Public Use
  Company Number: FR-BAYER-2012-090383

PATIENT
  Age: 75 Year
  Sex: Male
  Weight: 77 kg

DRUGS (6)
  1. ULTRAVIST [Suspect]
     Indication: COMPUTERISED TOMOGRAM
     Dosage: 90ML, ONCE
     Route: 042
     Dates: start: 20120823, end: 20120823
  2. ETHANOL [Concomitant]
     Indication: INFECTION PROPHYLAXIS
     Dosage: UNK
  3. PREVISCAN [Concomitant]
     Dosage: DAILY DOSE 30 MG
  4. BISOPROLOL [Concomitant]
     Dosage: DAILY DOSE 5 MG
  5. TAHOR [Concomitant]
     Dosage: DAILY DOSE 20 MG
  6. OMEPRAZOLE [Concomitant]

REACTIONS (2)
  - Parotid gland inflammation [None]
  - Submaxillary gland enlargement [Recovered/Resolved]
